FAERS Safety Report 8158115-0 (Version None)
Quarter: 2012Q1

REPORT INFORMATION
  Report Type: 
  Country: None (occurrence: None)
  Receive Date: 20120222
  Receipt Date: 20120221
  Transmission Date: 20120608
  Serious: Yes (Hospitalization, Other)
  Sender: FDA-Public Use
  Company Number: PHHY2012ES014830

PATIENT
  Age: 55 Year
  Sex: Male

DRUGS (7)
  1. MERCAPTOPURINE [Concomitant]
     Dosage: UNK
  2. ATORVASTATIN [Concomitant]
     Dosage: UNK
  3. ISOSORBIDE MONONITRATE [Concomitant]
     Dosage: UNK
  4. VALIUM [Concomitant]
     Dosage: UNK
  5. NEBIVOLOL HCL [Concomitant]
     Dosage: UNK
  6. EXJADE [Suspect]
     Indication: IRON OVERLOAD
     Dosage: 1250 MG, DAILY
     Route: 048
     Dates: start: 20101229, end: 20110123
  7. METHOTREXATE [Concomitant]
     Dosage: UNK

REACTIONS (1)
  - APLASTIC ANAEMIA [None]
